FAERS Safety Report 24101792 (Version 1)
Quarter: 2024Q3

REPORT INFORMATION
  Report Type: Report from Study
  Country: US (occurrence: None)
  Receive Date: 20240717
  Receipt Date: 20240717
  Transmission Date: 20241017
  Serious: Yes (Other)
  Sender: ASTRAZENECA
  Company Number: 2019SF71639

PATIENT
  Sex: Female

DRUGS (1)
  1. LYNPARZA [Suspect]
     Active Substance: OLAPARIB
     Indication: Breast cancer female
     Route: 048
     Dates: start: 20191119

REACTIONS (7)
  - Pleural effusion [Unknown]
  - Pain [Unknown]
  - Constipation [Unknown]
  - Abdominal discomfort [Unknown]
  - Nausea [Unknown]
  - Vomiting [Unknown]
  - Headache [Unknown]
